FAERS Safety Report 7052287-7 (Version None)
Quarter: 2010Q4

REPORT INFORMATION
  Report Type: 
  Country: None (occurrence: None)
  Receive Date: 20101019
  Receipt Date: 20101011
  Transmission Date: 20110411
  Serious: Yes (Death, Other)
  Sender: FDA-Public Use
  Company Number: TR-ELI_LILLY_AND_COMPANY-TR201010002761

PATIENT

DRUGS (3)
  1. HUMALOG [Suspect]
     Dosage: 20 U, EACH MORNING
     Route: 064
     Dates: start: 20091226
  2. HUMALOG [Suspect]
     Dosage: 14 U, DAILY (1/D)
     Route: 064
     Dates: start: 20091226
  3. HUMALOG [Suspect]
     Dosage: 11 U, EACH EVENING
     Route: 064

REACTIONS (3)
  - DEATH NEONATAL [None]
  - DRUG EXPOSURE DURING PREGNANCY [None]
  - PREMATURE BABY [None]
